FAERS Safety Report 4517114-8 (Version None)
Quarter: 2004Q4

REPORT INFORMATION
  Report Type: 
  Country: None (occurrence: None)
  Receive Date: 20041130
  Receipt Date: 20041116
  Transmission Date: 20050328
  Serious: Yes (Death, Hospitalization)
  Sender: FDA-Public Use
  Company Number: JP_040603415

PATIENT
  Age: 43 Year
  Sex: Female
  Weight: 65 kg

DRUGS (14)
  1. GEMZAR- IV 9GEMCITABINE) (GEMCITABINE HYDROCHLORIDE) [Suspect]
     Indication: NON-SMALL CELL LUNG CANCER STAGE IV
     Dosage: 1000 MG/M2 OTHER
     Dates: start: 20040406, end: 20040413
  2. NAVELBINE 9VINORELBINE DITARTRATE) [Concomitant]
  3. LENDORM [Concomitant]
  4. NITRAZEPAM [Concomitant]
  5. SEROQUEL [Concomitant]
  6. ANAFRANIL [Concomitant]
  7. LUVOX [Concomitant]
  8. VOLTAREN (DICLOFENAC POTSSIUM) [Concomitant]
  9. MS CONTIN [Concomitant]
  10. GASTER (FAMOTIDINE) [Concomitant]
  11. TICLOPIDINE HCL [Concomitant]
  12. BUFFERIN [Concomitant]
  13. PACLITAXEL [Concomitant]
  14. PARAPLTIN (CARBOPLATIN SANOFI-SYNTHELABO) [Concomitant]

REACTIONS (6)
  - CONDITION AGGRAVATED [None]
  - HYPOXIA [None]
  - LUNG NEOPLASM MALIGNANT [None]
  - PNEUMONIA [None]
  - PNEUMONITIS [None]
  - PULMONARY EMBOLISM [None]
